FAERS Safety Report 7323637-9 (Version None)
Quarter: 2011Q1

REPORT INFORMATION
  Report Type: 
  Country: None (occurrence: None)
  Receive Date: 20110301
  Receipt Date: 20110223
  Transmission Date: 20110831
  Serious: Yes (Life-Threatening)
  Sender: FDA-Public Use
  Company Number: DE-ROCHE-762532

PATIENT
  Sex: Female
  Weight: 64 kg

DRUGS (3)
  1. AERODUR [Concomitant]
     Route: 055
  2. TRASTUZUMAB [Suspect]
     Indication: BREAST CANCER
     Dosage: LOADING DOSAGE: 8 MG/KG
     Route: 042
     Dates: start: 20100929, end: 20101201
  3. PULMICORT [Concomitant]
     Route: 055

REACTIONS (1)
  - ASTHMA [None]
